FAERS Safety Report 6615583-0 (Version None)
Quarter: 2010Q1

REPORT INFORMATION
  Report Type: 
  Country: None (occurrence: None)
  Receive Date: 20100301
  Receipt Date: 20100223
  Transmission Date: 20100710
  Serious: Yes (Death)
  Sender: FDA-Public Use
  Company Number: 2010SP011666

PATIENT
  Age: 29 Year
  Sex: Female

DRUGS (1)
  1. TEMODAL [Suspect]
     Indication: BREAST CANCER METASTATIC
     Dosage: 77.6 MG; PO
     Route: 048

REACTIONS (1)
  - SUDDEN DEATH [None]
